FAERS Safety Report 9840737 (Version 1)
Quarter: 2014Q1

REPORT INFORMATION
  Report Type: Spontaneous
  Country: US (occurrence: US)
  Receive Date: 20140124
  Receipt Date: 20140124
  Transmission Date: 20141002
  Serious: Yes (Hospitalization, Other)
  Sender: FDA-Public Use
  Company Number: US-JNJFOC-20140107968

PATIENT
  Age: 56 Year
  Sex: 0
  Weight: 95.26 kg

DRUGS (4)
  1. UNSPECIFIED FENTANYL PATCH [Suspect]
     Indication: PAIN
     Dosage: 75 MCG 2 PATCHES 72 HOURS INTERVAL
     Route: 062
  2. UNSPECIFIED FENTANYL PATCH [Suspect]
     Indication: PAIN
     Dosage: 150 MCG 2 PATCHES 72 HOURS
     Route: 062
     Dates: end: 2013
  3. FENTANYL TRANSDERMAL SYSTEM [Suspect]
     Indication: BACK PAIN
     Dosage: 75 MCG 2 PATCHES 72 HOURS
     Route: 062
     Dates: start: 2013
  4. CODEINE [Suspect]
     Indication: PAIN
     Route: 065

REACTIONS (8)
  - Back injury [Recovered/Resolved]
  - Adverse reaction [Recovered/Resolved]
  - Body height decreased [Unknown]
  - Pancreaticoduodenectomy [Unknown]
  - Feeling abnormal [Recovered/Resolved]
  - Drooling [Recovered/Resolved]
  - Drug effect incomplete [Not Recovered/Not Resolved]
  - Abnormal loss of weight [Unknown]
